FAERS Safety Report 8251006-6 (Version None)
Quarter: 2012Q2

REPORT INFORMATION
  Report Type: 
  Country: None (occurrence: None)
  Receive Date: 20120402
  Receipt Date: 20120327
  Transmission Date: 20120825
  Serious: No
  Sender: FDA-Public Use
  Company Number: US-PFIZER INC-2012079635

PATIENT
  Sex: Female

DRUGS (4)
  1. EFFEXOR XR [Suspect]
     Dosage: UNK
  2. CELEBREX [Suspect]
     Dosage: UNK
  3. DETROL LA [Suspect]
     Dosage: UNK
  4. XALATAN [Suspect]
     Dosage: UNK

REACTIONS (3)
  - PAIN [None]
  - DYSSTASIA [None]
  - GAIT DISTURBANCE [None]
